FAERS Safety Report 19718451 (Version 1)
Quarter: 2021Q3

REPORT INFORMATION
  Report Type: Spontaneous
  Country: US (occurrence: US)
  Receive Date: 20210818
  Receipt Date: 20210818
  Transmission Date: 20211014
  Serious: Yes (Other)
  Sender: FDA-Public Use
  Company Number: None

PATIENT
  Age: 87 Year
  Sex: Female

DRUGS (1)
  1. JAKAFI [Suspect]
     Active Substance: RUXOLITINIB
     Dosage: ?          OTHER FREQUENCY:TAKE 1 TABLET BY M;?
     Route: 048

REACTIONS (1)
  - Transfusion [None]

NARRATIVE: CASE EVENT DATE: 20210818
